FAERS Safety Report 15144959 (Version 1)
Quarter: 2018Q3

REPORT INFORMATION
  Report Type: Report from Study
  Country: ES (occurrence: ES)
  Receive Date: 20180713
  Receipt Date: 20180713
  Transmission Date: 20181010
  Serious: Yes (Death, Hospitalization)
  Sender: FDA-Public Use
  Company Number: ES-SA-2018SA178978

PATIENT
  Age: 82 Year
  Sex: Female

DRUGS (3)
  1. ALTEPLASA [Suspect]
     Active Substance: ALTEPLASE
     Indication: CEREBROVASCULAR ACCIDENT
     Dosage: 5,4 MG + 48,6 MG DAY
     Route: 042
     Dates: start: 20170918, end: 20170918
  2. ENOXAPARIN SODIUM. [Suspect]
     Active Substance: ENOXAPARIN SODIUM
     Indication: CEREBROVASCULAR ACCIDENT
     Dosage: 40 MG, Q12H
     Route: 058
     Dates: start: 20170918, end: 20170922
  3. ATORVASTATINA [ATORVASTATIN] [Concomitant]
     Indication: PRODUCT USED FOR UNKNOWN INDICATION
     Dosage: 80 MG, QD
     Route: 048
     Dates: start: 20170918

REACTIONS (3)
  - Peripheral artery haematoma [Fatal]
  - Shock haemorrhagic [Fatal]
  - Cardiac arrest [Fatal]

NARRATIVE: CASE EVENT DATE: 20170919
